FAERS Safety Report 13714553 (Version 1)
Quarter: 2017Q3

REPORT INFORMATION
  Report Type: Spontaneous
  Country: US (occurrence: US)
  Receive Date: 20170704
  Receipt Date: 20170704
  Transmission Date: 20171127
  Serious: Yes (Death)
  Sender: FDA-Public Use
  Company Number: US-INSYS THERAPEUTICS, INC-INS201706-000412

PATIENT
  Age: 41 Year
  Sex: Male

DRUGS (2)
  1. SUBSYS [Suspect]
     Active Substance: FENTANYL
     Indication: BREAKTHROUGH PAIN
     Dates: start: 20160719
  2. OXYCODONE HCI [Concomitant]

REACTIONS (1)
  - Neoplasm progression [Fatal]

NARRATIVE: CASE EVENT DATE: 20170510
